FAERS Safety Report 17554721 (Version 4)
Quarter: 2020Q3

REPORT INFORMATION
  Report Type: Report from Study
  Country: IT (occurrence: IT)
  Receive Date: 20200318
  Receipt Date: 20200713
  Transmission Date: 20201102
  Serious: Yes (Other)
  Sender: FDA-Public Use
  Company Number: IT-AUROBINDO-AUR-APL-2020-013835

PATIENT
  Age: 75 Year
  Sex: Female

DRUGS (3)
  1. MELPHALAN. [Suspect]
     Active Substance: MELPHALAN
     Indication: PLASMA CELL MYELOMA
     Dosage: 9 MILLIGRAM/SQ. METER DAYS 1?4
     Route: 065
  2. PREDNISONE. [Suspect]
     Active Substance: PREDNISONE
     Indication: PLASMA CELL MYELOMA
     Dosage: 50 MILLIGRAM, DAILY (1?4 DAYS (9 CYCLES))
     Route: 065
  3. BORTEZOMIB. [Suspect]
     Active Substance: BORTEZOMIB
     Indication: PLASMA CELL MYELOMA
     Dosage: 1 MG/M2 AT DAY 1,8,22,29 OF THE CYCLE
     Route: 065

REACTIONS (4)
  - Muscular weakness [Recovered/Resolved]
  - Neutropenia [Unknown]
  - Myopathy [Recovered/Resolved]
  - Metabolic disorder [Recovered/Resolved]
